FAERS Safety Report 5839494-3 (Version None)
Quarter: 2008Q3

REPORT INFORMATION
  Report Type: 
  Country: None (occurrence: None)
  Receive Date: 20080806
  Receipt Date: 20080722
  Transmission Date: 20090109
  Serious: Yes (Life-Threatening, Hospitalization)
  Sender: FDA-Public Use
  Company Number: 2008US001941

PATIENT
  Age: 17 Year
  Sex: Female

DRUGS (4)
  1. PROGRAF [Suspect]
     Indication: RENAL TRANSPLANT
     Dosage: 6 MG, UID/QD,ORAL
     Route: 048
  2. PREDNISONE [Concomitant]
  3. MYCOPHENOLATE (MYCOPHENOLATE MOFETIL) [Concomitant]
  4. ENALAPRIL MALEATE [Concomitant]

REACTIONS (3)
  - GRAFT LOSS [None]
  - PERITONEAL HAEMATOMA [None]
  - SUICIDE ATTEMPT [None]
